FAERS Safety Report 9113448 (Version 1)
Quarter: 2013Q1

REPORT INFORMATION
  Report Type: Report from Study
  Country: US (occurrence: US)
  Receive Date: 20130129
  Receipt Date: 20130129
  Transmission Date: 20140127
  Serious: No
  Sender: FDA-Public Use
  Company Number: US-ABBOTT-12P-163-0942139-00

PATIENT
  Age: 61 Year
  Sex: Male

DRUGS (6)
  1. HUMIRA 40 MG/0.8 ML PEN [Suspect]
     Indication: RHEUMATOID ARTHRITIS
     Dates: start: 20120503
  2. HYDROCODONE [Concomitant]
     Indication: PAIN
     Dosage: 10
  3. CALCIUM [Concomitant]
     Indication: BONE DISORDER
  4. FOLIC ACID [Concomitant]
     Indication: PRODUCT USED FOR UNKNOWN INDICATION
  5. NEURONTIN [Concomitant]
     Indication: NEURALGIA
  6. CLYANINE [Concomitant]
     Indication: ARTHRITIS

REACTIONS (4)
  - Toothache [Not Recovered/Not Resolved]
  - Injection site pain [Not Recovered/Not Resolved]
  - Oral infection [Not Recovered/Not Resolved]
  - Pleurisy [Not Recovered/Not Resolved]
